FAERS Safety Report 13387380 (Version 2)
Quarter: 2017Q2

REPORT INFORMATION
  Report Type: Spontaneous
  Country: IT (occurrence: IT)
  Receive Date: 20170330
  Receipt Date: 20170508
  Transmission Date: 20170830
  Serious: Yes (Other)
  Sender: FDA-Public Use
  Company Number: IT-MUNDIPHARMA DS AND PHARMACOVIGILANCE-GBR-2017-0044005

PATIENT
  Age: 64 Year
  Sex: Female
  Weight: 68 kg

DRUGS (1)
  1. TARGIN [Suspect]
     Active Substance: NALOXONE HYDROCHLORIDE\OXYCODONE HYDROCHLORIDE
     Indication: SCIATICA
     Dosage: 10MG/5MG DAILY (STRENGHT 10MG/5MG)
     Route: 048
     Dates: start: 20170217, end: 20170217

REACTIONS (6)
  - Asthenia [Unknown]
  - Arteritis [Unknown]
  - Abdominal pain [Unknown]
  - Vomiting [Unknown]
  - Feeling cold [Unknown]
  - Nausea [Unknown]

NARRATIVE: CASE EVENT DATE: 20170217
